FAERS Safety Report 12331310 (Version 1)
Quarter: 2016Q2

REPORT INFORMATION
  Report Type: Spontaneous
  Country: CN (occurrence: CN)
  Receive Date: 20160504
  Receipt Date: 20160504
  Transmission Date: 20160815
  Serious: Yes (Death)
  Sender: FDA-Public Use
  Company Number: CN-CELGENEUS-CHN-2016045333

PATIENT
  Age: 20 Year
  Sex: Male
  Weight: 120 kg

DRUGS (7)
  1. SORAFENIB [Concomitant]
     Active Substance: SORAFENIB
     Indication: CLEAR CELL SARCOMA OF SOFT TISSUE
     Route: 048
     Dates: start: 20150324
  2. ABRAXANE [Suspect]
     Active Substance: PACLITAXEL
     Indication: OFF LABEL USE
  3. BEVACIZUMAB [Concomitant]
     Active Substance: BEVACIZUMAB
     Indication: CLEAR CELL SARCOMA OF SOFT TISSUE
     Dosage: 400 MILLIGRAM
     Route: 041
     Dates: start: 20150324
  4. SORAFENIB [Concomitant]
     Active Substance: SORAFENIB
     Dosage: 250 MILLIGRAM
     Route: 048
     Dates: start: 20141209
  5. KEYTRUDA [Concomitant]
     Active Substance: PEMBROLIZUMAB
     Indication: CLEAR CELL SARCOMA OF SOFT TISSUE
     Route: 041
     Dates: start: 20150324
  6. BEVACIZUMAB [Concomitant]
     Active Substance: BEVACIZUMAB
     Dosage: 2.8 GRAM
     Route: 041
     Dates: start: 20141209
  7. ABRAXANE [Suspect]
     Active Substance: PACLITAXEL
     Indication: CLEAR CELL SARCOMA OF SOFT TISSUE
     Dosage: 500/300 MG
     Route: 041
     Dates: start: 20150324

REACTIONS (5)
  - Infection [Fatal]
  - Sarcoma metastatic [Fatal]
  - Disease progression [Unknown]
  - Skin infection [Unknown]
  - Blood albumin decreased [Unknown]
